FAERS Safety Report 11720157 (Version 1)
Quarter: 2015Q4

REPORT INFORMATION
  Report Type: Spontaneous
  Country: US (occurrence: US)
  Receive Date: 20151110
  Receipt Date: 20151110
  Transmission Date: 20160304
  Serious: No
  Sender: FDA-Public Use
  Company Number: US-BAYER-2015-463910

PATIENT
  Age: 26 Year
  Sex: Male
  Weight: 58.96 kg

DRUGS (1)
  1. CLARITIN [Suspect]
     Active Substance: LORATADINE
     Indication: URTICARIA
     Dosage: 1 DF, ONCE
     Route: 048
     Dates: start: 20151105

REACTIONS (1)
  - Product use issue [None]

NARRATIVE: CASE EVENT DATE: 20151105
